FAERS Safety Report 9591973 (Version 3)
Quarter: 2014Q1

REPORT INFORMATION
  Report Type: Spontaneous
  Country: US (occurrence: US)
  Receive Date: 20131004
  Receipt Date: 20140304
  Transmission Date: 20141002
  Serious: No
  Sender: FDA-Public Use
  Company Number: US-AMGEN-USASP2013065876

PATIENT
  Age: 45 Year
  Sex: Female
  Weight: 136.5 kg

DRUGS (6)
  1. ENBREL [Suspect]
     Indication: PRODUCT USED FOR UNKNOWN INDICATION
     Dosage: 50 MG, QWK
     Route: 058
  2. FOLIC ACID [Concomitant]
     Dosage: UNK
  3. METHOTREXATE [Concomitant]
     Dosage: 2.5 MG, UNK
  4. HYDROXYCHLOROQUINE [Concomitant]
     Dosage: 200 MG, UNK
  5. CELEXA                             /00582602/ [Concomitant]
     Dosage: 10 MG, UNK
  6. PREDNISONE [Concomitant]
     Dosage: 1 MG, UNK

REACTIONS (3)
  - Vomiting [Unknown]
  - Nausea [Unknown]
  - Injection site pain [Unknown]
